FAERS Safety Report 9106241 (Version 1)
Quarter: 2013Q1

REPORT INFORMATION
  Report Type: Spontaneous
  Country: US (occurrence: US)
  Receive Date: 20130220
  Receipt Date: 20130220
  Transmission Date: 20140127
  Serious: No
  Sender: FDA-Public Use
  Company Number: US-TEVA-386389USA

PATIENT
  Sex: 0

DRUGS (4)
  1. COPAXONE [Suspect]
  2. AVONEX [Suspect]
  3. BETASERON [Suspect]
  4. REBIF [Suspect]

REACTIONS (1)
  - Adverse event [Unknown]
